FAERS Safety Report 6496614-8 (Version None)
Quarter: 2009Q4

REPORT INFORMATION
  Report Type: 
  Country: None (occurrence: None)
  Receive Date: 20091125
  Receipt Date: 20081028
  Transmission Date: 20100525
  Serious: Yes (Other)
  Sender: FDA-Public Use
  Company Number: 2008BH011542

PATIENT
  Age: 50 Year
  Sex: Female

DRUGS (14)
  1. DIANEAL [Suspect]
     Indication: PERITONEAL DIALYSIS
     Dosage: 12 L; EVERY DAY; IP
     Route: 033
  2. HALDOL [Concomitant]
  3. MIRALAX [Concomitant]
  4. NEURONTIN [Concomitant]
  5. OS-CAL [Concomitant]
  6. SIMVASTATIN [Concomitant]
  7. OXYCODONE [Concomitant]
  8. SENSIPAR [Concomitant]
  9. SYNTHROID [Concomitant]
  10. ZEMPLAR [Concomitant]
  11. RENVELA [Concomitant]
  12. SEROQUEL [Concomitant]
  13. TRILEPTAL [Concomitant]
  14. HEPARIN [Concomitant]

REACTIONS (2)
  - HERPES ZOSTER [None]
  - PERITONITIS BACTERIAL [None]
